FAERS Safety Report 12690262 (Version 3)
Quarter: 2016Q4

REPORT INFORMATION
  Report Type: Spontaneous
  Country: GB (occurrence: GB)
  Receive Date: 20160826
  Receipt Date: 20161006
  Transmission Date: 20170207
  Serious: Yes (Hospitalization, Disabling, Other)
  Sender: FDA-Public Use
  Company Number: GB-BAYER-2016-150213

PATIENT
  Age: 32 Year
  Sex: Female
  Weight: 74 kg

DRUGS (8)
  1. CITALOPRAM [Concomitant]
     Active Substance: CITALOPRAM HYDROBROMIDE
  2. CLENIL [Concomitant]
     Active Substance: BECLOMETHASONE DIPROPIONATE
  3. MIRENA [Suspect]
     Active Substance: LEVONORGESTREL
     Indication: CONTRACEPTION
     Dosage: 20 MCG/24HR, CONT
     Route: 015
     Dates: start: 20120206, end: 20120828
  4. AMITRIPTYLINE [Concomitant]
     Active Substance: AMITRIPTYLINE
  5. COCODAMOL [Concomitant]
     Active Substance: ACETAMINOPHEN\CODEINE PHOSPHATE
  6. OMEPRAZOL [Concomitant]
     Active Substance: OMEPRAZOLE
  7. MIRENA [Suspect]
     Active Substance: LEVONORGESTREL
     Indication: CONTRACEPTION
     Dosage: 20 MCG/24HR, CONT
     Route: 015
  8. GABAPENTIN. [Concomitant]
     Active Substance: GABAPENTIN

REACTIONS (13)
  - Coital bleeding [Unknown]
  - Abdominal pain lower [Not Recovered/Not Resolved]
  - Presyncope [Unknown]
  - Vaginal haemorrhage [Unknown]
  - Genital haemorrhage [Unknown]
  - Uterine infection [Unknown]
  - Abdominal pain [Unknown]
  - Uterine perforation [Recovered/Resolved]
  - Pelvic pain [None]
  - Pelvic inflammatory disease [Not Recovered/Not Resolved]
  - Endometriosis [Recovered/Resolved]
  - Device dislocation [Unknown]
  - Ovarian cyst [Unknown]

NARRATIVE: CASE EVENT DATE: 201202
